FAERS Safety Report 4594113-1 (Version None)
Quarter: 2005Q1

REPORT INFORMATION
  Report Type: 
  Country: None (occurrence: None)
  Receive Date: 20050222
  Receipt Date: 20050215
  Transmission Date: 20050727
  Serious: Yes (Hospitalization)
  Sender: FDA-Public Use
  Company Number: OMPQ-NO-0502S-0323

PATIENT
  Age: 19 Year
  Sex: Female

DRUGS (1)
  1. OMNIPAQUE 140 [Suspect]
     Indication: HEADACHE
     Dosage: 40 ML, SINGLE DOSE, I.V.
     Route: 042
     Dates: start: 20050212, end: 20050212

REACTIONS (3)
  - BACK PAIN [None]
  - CONTRAST MEDIA REACTION [None]
  - HEADACHE [None]
